FAERS Safety Report 4982875-0 (Version None)
Quarter: 2006Q2

REPORT INFORMATION
  Report Type: 
  Country: None (occurrence: None)
  Receive Date: 20060420
  Receipt Date: 20060404
  Transmission Date: 20061013
  Serious: Yes (Hospitalization)
  Sender: FDA-Public Use
  Company Number: US-2005-017045

PATIENT
  Age: 53 Year
  Sex: Female
  Weight: 108.8 kg

DRUGS (1)
  1. BETASERON [Suspect]
     Indication: RELAPSING-REMITTING MULTIPLE SCLEROSIS
     Dosage: 8 MIU, 3X/WEEK, SUBCUTANEOUS
     Route: 058
     Dates: start: 20050418

REACTIONS (4)
  - ASTHENIA [None]
  - CONVULSION [None]
  - FALL [None]
  - FOOT FRACTURE [None]
